FAERS Safety Report 18258894 (Version 5)
Quarter: 2020Q4

REPORT INFORMATION
  Report Type: Spontaneous
  Country: BR (occurrence: BR)
  Receive Date: 20200911
  Receipt Date: 20201105
  Transmission Date: 20210113
  Serious: Yes (Other)
  Sender: FDA-Public Use
  Company Number: BR-SHIRE-BR202014918

PATIENT

DRUGS (3)
  1. VENVANSE [Suspect]
     Active Substance: LISDEXAMFETAMINE DIMESYLATE
     Dosage: 50 MILLIGRAM, UNKNOWN
     Route: 048
  2. VENVANSE [Suspect]
     Active Substance: LISDEXAMFETAMINE DIMESYLATE
     Indication: ATTENTION DEFICIT HYPERACTIVITY DISORDER
     Dosage: 30 MILLIGRAM, 1X/DAY:QD
     Route: 048
     Dates: start: 2018, end: 20200729
  3. CITALOPRAM [Concomitant]
     Active Substance: CITALOPRAM HYDROBROMIDE
     Indication: ANXIETY DISORDER

REACTIONS (17)
  - Product availability issue [Unknown]
  - Suicidal ideation [Unknown]
  - Somnolence [Unknown]
  - Frustration tolerance decreased [Unknown]
  - Depression [Recovering/Resolving]
  - Product quality issue [Unknown]
  - Multimorbidity [Unknown]
  - Condition aggravated [Unknown]
  - General physical condition abnormal [Unknown]
  - Drug ineffective [Unknown]
  - Constipation [Unknown]
  - Nausea [Unknown]
  - Anxiety [Unknown]
  - Illness [Unknown]
  - Adverse drug reaction [Unknown]
  - Inappropriate schedule of product administration [Unknown]
  - Panic disorder [Unknown]

NARRATIVE: CASE EVENT DATE: 202003
